FAERS Safety Report 7934121-3 (Version None)
Quarter: 2011Q4

REPORT INFORMATION
  Report Type: 
  Country: None (occurrence: None)
  Receive Date: 20111122
  Receipt Date: 20111115
  Transmission Date: 20120403
  Serious: Yes (Other)
  Sender: FDA-Public Use
  Company Number: FR-UCBSA-045851

PATIENT

DRUGS (1)
  1. CIMZIA [Suspect]
     Dosage: UNKNOWN DOSAGE
     Route: 058

REACTIONS (1)
  - PSORIASIS [None]
